FAERS Safety Report 21195848 (Version 1)
Quarter: 2022Q3

REPORT INFORMATION
  Report Type: Spontaneous
  Country: US (occurrence: None)
  Receive Date: 20220810
  Receipt Date: 20220810
  Transmission Date: 20221027
  Serious: Yes (Death)
  Sender: FDA-Public Use
  Company Number: None

PATIENT
  Sex: Female

DRUGS (2)
  1. CYCLOPHOSPHAMIDE [Suspect]
     Active Substance: CYCLOPHOSPHAMIDE
     Indication: Plasma cell myeloma in remission
     Dosage: OTHER FREQUENCY : WEEKLY FOR 3 WEEKS;?
     Route: 048
     Dates: start: 20220719, end: 20220802
  2. NINLARO [Concomitant]
     Active Substance: IXAZOMIB CITRATE
     Dates: start: 20220719, end: 20220802

REACTIONS (1)
  - Death [None]
